FAERS Safety Report 8821006 (Version 1)
Quarter: 2012Q4

REPORT INFORMATION
  Report Type: 
  Country: US (occurrence: US)
  Receive Date: 20121002
  Receipt Date: 20121002
  Transmission Date: 20130627
  Serious: Yes (Other)
  Sender: FDA-Public Use
  Company Number: US-JNJFOC-20120910685

PATIENT
  Age: 84 Year
  Weight: 63.5 kg

DRUGS (1)
  1. EXTRA STRENGTH TYLENOL [Suspect]
     Indication: PAIN
     Route: 048

REACTIONS (6)
  - Torticollis [Unknown]
  - Abdominal discomfort [Unknown]
  - Constipation [Unknown]
  - Decreased appetite [Unknown]
  - Drug ineffective [Unknown]
  - Inadequate analgesia [None]
